FAERS Safety Report 7073514-6 (Version None)
Quarter: 2010Q4

REPORT INFORMATION
  Report Type: 
  Country: None (occurrence: None)
  Receive Date: 20101029
  Receipt Date: 20100701
  Transmission Date: 20110411
  Serious: No
  Sender: FDA-Public Use
  Company Number: A0868164A

PATIENT
  Age: 75 Year
  Sex: Male

DRUGS (7)
  1. ADVAIR DISKUS 100/50 [Suspect]
     Indication: PNEUMONIA
     Dosage: 1PUFF TWICE PER DAY
     Route: 055
     Dates: start: 20100625
  2. COMBIVENT [Suspect]
     Dates: start: 20100625
  3. COMBIVENT [Concomitant]
  4. BLOOD PRESSURE MEDICATION [Concomitant]
  5. UNSPECIFIED MEDICATION [Concomitant]
     Indication: GOUT
  6. DIABETES MEDICATION [Concomitant]
  7. CHOLESTEROL REDUCING AGENT [Concomitant]

REACTIONS (2)
  - HYPERSENSITIVITY [None]
  - LIP SWELLING [None]
